FAERS Safety Report 18202945 (Version 1)
Quarter: 2020Q3

REPORT INFORMATION
  Report Type: Spontaneous
  Country: US (occurrence: US)
  Receive Date: 20200827
  Receipt Date: 20200827
  Transmission Date: 20201103
  Serious: No
  Sender: FDA-Public Use
  Company Number: US-THERAPEUTICSMD-2020TMD02820

PATIENT
  Sex: Female

DRUGS (4)
  1. ANNOVERA [Suspect]
     Active Substance: ETHINYL ESTRADIOL\SEGESTERONE ACETATE
     Indication: PREMENSTRUAL SYNDROME
     Dosage: 1 RING, CONTINUOUS
     Route: 067
     Dates: start: 2020, end: 2020
  2. UNSPECIFIED PSYCHOTROPIC MEDICATIONS [Concomitant]
     Active Substance: UNSPECIFIED INGREDIENT
  3. ANNOVERA [Suspect]
     Active Substance: ETHINYL ESTRADIOL\SEGESTERONE ACETATE
     Dosage: 1 RING, CONTINUOUS
     Route: 067
     Dates: start: 2020
  4. ANNOVERA [Suspect]
     Active Substance: ETHINYL ESTRADIOL\SEGESTERONE ACETATE
     Indication: MENSTRUAL DISORDER
     Dosage: 1 RING, REMOVED
     Route: 067
     Dates: start: 2020, end: 2020

REACTIONS (3)
  - Off label use [Not Recovered/Not Resolved]
  - Drug ineffective for unapproved indication [Not Recovered/Not Resolved]
  - Metrorrhagia [Not Recovered/Not Resolved]

NARRATIVE: CASE EVENT DATE: 2020
